FAERS Safety Report 19065578 (Version 7)
Quarter: 2022Q1

REPORT INFORMATION
  Report Type: Report from Study
  Country: BR (occurrence: BR)
  Receive Date: 20210327
  Receipt Date: 20220216
  Transmission Date: 20220423
  Serious: Yes (Death, Life-Threatening, Hospitalization, Other)
  Sender: FDA-Public Use
  Company Number: NVSC2020BR296883

PATIENT
  Sex: Female

DRUGS (6)
  1. KISQALI [Suspect]
     Active Substance: RIBOCICLIB
     Indication: Breast cancer
     Dosage: UNK (CONTINUOUS 21 DAYS AND 1 WEEK BREAK)
     Route: 065
     Dates: start: 20201006
  2. FEMARA [Suspect]
     Active Substance: LETROZOLE
     Indication: Product used for unknown indication
     Dosage: UNK
     Route: 065
     Dates: start: 201603, end: 20201005
  3. DIOVAN [Suspect]
     Active Substance: VALSARTAN
     Indication: Cardiac failure
     Dosage: UNK
     Route: 065
  4. FULVESTRANT [Suspect]
     Active Substance: FULVESTRANT
     Indication: Breast cancer metastatic
     Dosage: UNK
     Route: 065
  5. TRAMADOL [Suspect]
     Active Substance: TRAMADOL
     Indication: Pain
     Dosage: UNK
     Route: 065
  6. FASLODEX [Concomitant]
     Active Substance: FULVESTRANT
     Indication: Product used for unknown indication
     Dosage: UNK
     Route: 065
     Dates: start: 20200929

REACTIONS (53)
  - Death [Fatal]
  - Pain [Recovering/Resolving]
  - Swelling [Recovered/Resolved]
  - Oxygen saturation decreased [Unknown]
  - Malaise [Unknown]
  - Vomiting [Recovered/Resolved]
  - Blindness [Recovered/Resolved]
  - Spinal fracture [Not Recovered/Not Resolved]
  - Diabetes mellitus [Unknown]
  - Renal impairment [Not Recovered/Not Resolved]
  - Ill-defined disorder [Unknown]
  - Loss of consciousness [Unknown]
  - Cardiac failure [Unknown]
  - Syncope [Unknown]
  - Metastases to bone [Unknown]
  - Metastases to spine [Unknown]
  - Breast cancer [Unknown]
  - Blindness unilateral [Not Recovered/Not Resolved]
  - Dysstasia [Not Recovered/Not Resolved]
  - Sitting disability [Not Recovered/Not Resolved]
  - Spinal pain [Recovered/Resolved]
  - Fracture [Unknown]
  - Pruritus [Not Recovered/Not Resolved]
  - Bone disorder [Unknown]
  - Blister [Unknown]
  - Animal scratch [Unknown]
  - Renal disorder [Not Recovered/Not Resolved]
  - Vein disorder [Unknown]
  - Bone pain [Unknown]
  - Pain in extremity [Not Recovered/Not Resolved]
  - Insomnia [Unknown]
  - Arthralgia [Not Recovered/Not Resolved]
  - Drug intolerance [Unknown]
  - Skin laceration [Unknown]
  - Scab [Unknown]
  - Pulmonary mass [Unknown]
  - Hyperhidrosis [Unknown]
  - Osteopetrosis [Unknown]
  - Dysuria [Unknown]
  - Osteoporosis [Not Recovered/Not Resolved]
  - Back pain [Recovering/Resolving]
  - Spinal pain [Recovered/Resolved]
  - Crying [Unknown]
  - Screaming [Unknown]
  - Visual impairment [Not Recovered/Not Resolved]
  - Osteoarthritis [Not Recovered/Not Resolved]
  - Dark circles under eyes [Unknown]
  - Skin lesion [Unknown]
  - Arthritis [Unknown]
  - Rheumatic disorder [Unknown]
  - Dizziness [Unknown]
  - Peripheral swelling [Unknown]
  - Pyrexia [Not Recovered/Not Resolved]

NARRATIVE: CASE EVENT DATE: 20200101
